FAERS Safety Report 7934758-1 (Version None)
Quarter: 2011Q4

REPORT INFORMATION
  Report Type: 
  Country: None (occurrence: None)
  Receive Date: 20111118
  Receipt Date: 20111108
  Transmission Date: 20120403
  Serious: Yes (Hospitalization)
  Sender: FDA-Public Use
  Company Number: 125715-1

PATIENT
  Age: 63 Year
  Sex: Female
  Weight: 67 kg

DRUGS (1)
  1. LEUCOVORIN CALCIUM [Suspect]
     Indication: COLORECTAL CANCER METASTATIC
     Dosage: 400MG/M2
     Dates: start: 20110802, end: 20110927

REACTIONS (12)
  - HYPERTENSION [None]
  - MALAISE [None]
  - COGNITIVE DISORDER [None]
  - VOMITING [None]
  - CONFUSIONAL STATE [None]
  - HEADACHE [None]
  - POSTERIOR REVERSIBLE ENCEPHALOPATHY SYNDROME [None]
  - DEPRESSED LEVEL OF CONSCIOUSNESS [None]
  - NAUSEA [None]
  - BLOOD PRESSURE INCREASED [None]
  - LEUKOENCEPHALOPATHY [None]
  - ATAXIA [None]
